FAERS Safety Report 9238118 (Version 2)
Quarter: 2013Q2

REPORT INFORMATION
  Report Type: Report from Study
  Country: MX (occurrence: MX)
  Receive Date: 20130418
  Receipt Date: 20130508
  Transmission Date: 20140414
  Serious: Yes (Hospitalization, Other)
  Sender: FDA-Public Use
  Company Number: PHHY2013MX003678

PATIENT
  Age: 59 Year
  Sex: Male

DRUGS (3)
  1. EXFORGE HCT [Suspect]
     Indication: HYPERTENSION
     Dosage: 1 TABLET (VALS 320 MG, AMLO 10 MG, HYDR 25 MG) DAILY
     Route: 048
     Dates: start: 201102, end: 201302
  2. RASILEZ HCT [Suspect]
     Indication: HEART RATE IRREGULAR
     Dosage: 1 DF, DAILY
     Dates: start: 201102, end: 201301
  3. HYDROCHLOROTHIAZIDE [Concomitant]
     Indication: BLOOD PRESSURE ABNORMAL
     Dosage: 1 DF, DAILY
     Dates: start: 201303

REACTIONS (2)
  - Appendicitis perforated [Not Recovered/Not Resolved]
  - Blood pressure increased [Not Recovered/Not Resolved]
